FAERS Safety Report 22088758 (Version 1)
Quarter: 2023Q1

REPORT INFORMATION
  Report Type: Spontaneous
  Country: JP (occurrence: JP)
  Receive Date: 20230313
  Receipt Date: 20230313
  Transmission Date: 20230418
  Serious: Yes (Hospitalization, Other)
  Sender: FDA-Public Use
  Company Number: JP-NBI-BJ202304197

PATIENT
  Age: 85 Year
  Sex: Male

DRUGS (6)
  1. DABIGATRAN ETEXILATE MESYLATE [Suspect]
     Active Substance: DABIGATRAN ETEXILATE MESYLATE
     Indication: Atrial fibrillation
     Route: 048
  2. ACETAMINOPHEN [Suspect]
     Active Substance: ACETAMINOPHEN
     Indication: Cerebral infarction
     Route: 048
  3. ASPIRIN [Suspect]
     Active Substance: ASPIRIN
     Indication: Cerebral infarction
     Route: 048
  4. CILOSTAZOL [Suspect]
     Active Substance: CILOSTAZOL
     Indication: Cerebral infarction
     Route: 048
  5. FAMOTIDINE [Concomitant]
     Active Substance: FAMOTIDINE
     Indication: Product used for unknown indication
     Route: 048
  6. HYDROCHLOROTHIAZIDE\LOSARTAN POTASSIUM [Concomitant]
     Active Substance: HYDROCHLOROTHIAZIDE\LOSARTAN POTASSIUM
     Indication: Product used for unknown indication
     Route: 048

REACTIONS (5)
  - International normalised ratio increased [Recovering/Resolving]
  - Activated partial thromboplastin time prolonged [Recovering/Resolving]
  - COVID-19 [Unknown]
  - Pneumonia bacterial [Unknown]
  - Sepsis [Unknown]

NARRATIVE: CASE EVENT DATE: 20230305
